FAERS Safety Report 24046327 (Version 2)
Quarter: 2024Q3

REPORT INFORMATION
  Report Type: Spontaneous
  Country: GB (occurrence: GB)
  Receive Date: 20240703
  Receipt Date: 20240812
  Transmission Date: 20241016
  Serious: Yes (Hospitalization)
  Sender: JOHNSON AND JOHNSON
  Company Number: GB-VIIV HEALTHCARE LIMITED-GB2024EME078728

PATIENT
  Sex: Male

DRUGS (4)
  1. PREZISTA [Suspect]
     Active Substance: DARUNAVIR ETHANOLATE
     Indication: HIV infection
     Dosage: 800 MG 100MG/ML ORAL SUS 240
     Route: 065
  2. TIVICAY [Suspect]
     Active Substance: DOLUTEGRAVIR SODIUM
     Indication: HIV infection
     Dosage: 50 MG TABLETS 30
     Route: 065
  3. EPIVIR [Suspect]
     Active Substance: LAMIVUDINE
     Indication: HIV infection
     Dosage: 300 MG 10MG/ML OSOL 240ML 1
     Route: 065
  4. NORVIR [Suspect]
     Active Substance: RITONAVIR
     Indication: Product used for unknown indication
     Dosage: 100 ML (100MG SACHETS 30)
     Route: 065

REACTIONS (1)
  - Discoloured vomit [Unknown]
